FAERS Safety Report 6062850-8 (Version None)
Quarter: 2009Q1

REPORT INFORMATION
  Report Type: 
  Country: None (occurrence: None)
  Receive Date: 20090203
  Receipt Date: 20090130
  Transmission Date: 20090719
  Serious: Yes (Other)
  Sender: FDA-Public Use
  Company Number: US-RB-002666-08

PATIENT
  Sex: Female

DRUGS (5)
  1. SUBOXONE [Suspect]
     Indication: DRUG DEPENDENCE
     Route: 060
     Dates: start: 20080104
  2. SUBOXONE [Suspect]
     Route: 060
  3. TOPAMAX [Suspect]
     Indication: MIGRAINE
     Route: 065
  4. NEURONTIN [Suspect]
     Indication: MIGRAINE
     Route: 065
  5. SEROQUEL [Suspect]
     Indication: SLEEP DISORDER
     Route: 065

REACTIONS (11)
  - BRAIN MASS [None]
  - CAESAREAN SECTION [None]
  - CEREBRAL DISORDER [None]
  - CEREBRAL VENTRICLE DILATATION [None]
  - DRUG EXPOSURE DURING PREGNANCY [None]
  - HYDROCEPHALUS [None]
  - PLACENTA PRAEVIA [None]
  - PREGNANCY [None]
  - PREMATURE BABY [None]
  - PREMATURE LABOUR [None]
  - SWELLING [None]
